FAERS Safety Report 22103178 (Version 2)
Quarter: 2023Q1

REPORT INFORMATION
  Report Type: Spontaneous
  Country: US (occurrence: US)
  Receive Date: 20230316
  Receipt Date: 20230317
  Transmission Date: 20230418
  Serious: No
  Sender: FDA-Public Use
  Company Number: US-GLAXOSMITHKLINE-USCH2023010903

PATIENT

DRUGS (1)
  1. VOLTAREN [Suspect]
     Active Substance: DICLOFENAC SODIUM
     Indication: Myalgia
     Dosage: 4 DOSAGE FORM, QID
     Route: 065

REACTIONS (2)
  - Product administered at inappropriate site [Unknown]
  - Drug ineffective [Unknown]
